FAERS Safety Report 5252036-9 (Version None)
Quarter: 2007Q1

REPORT INFORMATION
  Report Type: 
  Country: None (occurrence: None)
  Receive Date: 20070227
  Receipt Date: 20060620
  Transmission Date: 20070707
  Serious: Yes (Life-Threatening, Hospitalization)
  Sender: FDA-Public Use
  Company Number: DSA_29421_2007

PATIENT
  Age: 71 Year
  Sex: Female

DRUGS (8)
  1. HERBESSER [Suspect]
     Indication: HYPERTENSION
     Dosage: 30 MG Q DAY PO
     Route: 048
     Dates: start: 20051020, end: 20051103
  2. HERBESSER [Suspect]
     Indication: TACHYCARDIA
     Dosage: 30 MG Q DAY PO
     Route: 048
     Dates: start: 20051020, end: 20051103
  3. MONTELUKAST SODIUM [Concomitant]
  4. BLOPRESS [Concomitant]
  5. MEVALOTIN [Concomitant]
  6. VANCOMYCIN HYDROCHLORIDE [Concomitant]
  7. HABEKACIN [Concomitant]
  8. PREDONINE [Concomitant]

REACTIONS (9)
  - ARRHYTHMIA [None]
  - BLOOD PRESSURE INCREASED [None]
  - DEHYDRATION [None]
  - DRUG ERUPTION [None]
  - GENERALISED ERYTHEMA [None]
  - LIP SWELLING [None]
  - PYREXIA [None]
  - RASH PUSTULAR [None]
  - SHOCK [None]
